FAERS Safety Report 7644324-3 (Version None)
Quarter: 2011Q3

REPORT INFORMATION
  Report Type: 
  Country: None (occurrence: None)
  Receive Date: 20110729
  Receipt Date: 20110720
  Transmission Date: 20111222
  Serious: Yes (Other)
  Sender: FDA-Public Use
  Company Number: US-ASTRAZENECA-2010SE06759

PATIENT
  Age: 72 Year
  Sex: Female

DRUGS (3)
  1. PRILOSEC [Suspect]
     Route: 048
  2. NEXIUM [Suspect]
     Route: 048
  3. SEROQUEL XR [Suspect]
     Route: 048

REACTIONS (10)
  - VOMITING [None]
  - THROAT IRRITATION [None]
  - SPINAL OPERATION [None]
  - HEARING IMPAIRED [None]
  - MALAISE [None]
  - DRUG DOSE OMISSION [None]
  - FALL [None]
  - CARDIAC DISORDER [None]
  - VISUAL IMPAIRMENT [None]
  - DRUG INEFFECTIVE [None]
